FAERS Safety Report 12768233 (Version 1)
Quarter: 2016Q3

REPORT INFORMATION
  Report Type: Spontaneous
  Country: BR (occurrence: BR)
  Receive Date: 20160921
  Receipt Date: 20160921
  Transmission Date: 20161109
  Serious: Yes (Hospitalization, Other)
  Sender: FDA-Public Use
  Company Number: BR-ELI_LILLY_AND_COMPANY-BR201510007705

PATIENT
  Age: 37 Year
  Sex: Female
  Weight: 95 kg

DRUGS (1)
  1. HUMALOG [Suspect]
     Active Substance: INSULIN LISPRO
     Indication: DIABETES MELLITUS
     Dosage: UNK, OTHER
     Route: 058
     Dates: start: 2015

REACTIONS (6)
  - Hyperhidrosis [Unknown]
  - Suppressed lactation [Unknown]
  - Blood pressure increased [Unknown]
  - Amniotic fluid volume increased [Unknown]
  - Exposure during pregnancy [Recovered/Resolved]
  - Blood glucose increased [Unknown]

NARRATIVE: CASE EVENT DATE: 2015
